FAERS Safety Report 7446861-3 (Version None)
Quarter: 2011Q2

REPORT INFORMATION
  Report Type: 
  Country: None (occurrence: None)
  Receive Date: 20110429
  Receipt Date: 20110422
  Transmission Date: 20111010
  Serious: Yes (Death)
  Sender: FDA-Public Use
  Company Number: TR-PFIZER INC-2011087678

PATIENT
  Age: 50 Year
  Sex: Male

DRUGS (5)
  1. IMIPENEM [Suspect]
     Dosage: 500 UNK, 4X/DAY
     Route: 042
     Dates: start: 20090615, end: 20090616
  2. FUNGIZONE [Suspect]
     Dosage: 1 MG/KG, 1X/DAY
     Route: 042
     Dates: start: 20090622, end: 20090624
  3. TIGECYCLINE [Suspect]
     Dosage: 50 MG, 2X/DAY
     Route: 042
     Dates: start: 20090626, end: 20090703
  4. TEICOPLANIN [Suspect]
     Dosage: 400 UNK, 1X/DAY
     Route: 042
     Dates: start: 20090615, end: 20090626
  5. CASPOFUNGIN [Suspect]
     Dosage: 50 MG, 1X/DAY
     Route: 042
     Dates: start: 20090624

REACTIONS (1)
  - DEATH [None]
